FAERS Safety Report 10725532 (Version 1)
Quarter: 2015Q1

REPORT INFORMATION
  Report Type: Spontaneous
  Country: US (occurrence: US)
  Receive Date: 20150121
  Receipt Date: 20150121
  Transmission Date: 20150721
  Serious: No
  Sender: FDA-Public Use
  Company Number: US-GLAXOSMITHKLINE-US2015GSK006922

PATIENT
  Sex: Female

DRUGS (2)
  1. LAMICTAL XR [Suspect]
     Active Substance: LAMOTRIGINE
     Dosage: 200 MG, U
     Route: 065
  2. LAMICTAL XR [Suspect]
     Active Substance: LAMOTRIGINE
     Indication: EPILEPSY
     Dosage: 250 MG, U
     Route: 065

REACTIONS (3)
  - Drug ineffective [Unknown]
  - Exposure during pregnancy [Unknown]
  - Live birth [Unknown]
